FAERS Safety Report 7036117-5 (Version None)
Quarter: 2010Q4

REPORT INFORMATION
  Report Type: 
  Country: None (occurrence: None)
  Receive Date: 20101008
  Receipt Date: 20091204
  Transmission Date: 20110411
  Serious: No
  Sender: FDA-Public Use
  Company Number: US-BRISTOL-MYERS SQUIBB COMPANY-14882682

PATIENT
  Age: 75 Year
  Sex: Female
  Weight: 100 kg

DRUGS (7)
  1. AVALIDE TABS 300 MG/25 MG [Suspect]
     Indication: HYPERTENSION
     Dosage: 1 DF -AVALIDE 300MG/25MG ;TAKEN 3 DAYS/WEEK
     Route: 048
  2. AVAPRO [Suspect]
     Indication: HYPERTENSION
     Dosage: AVAPRO 300MG 4 DAYS/WEEK ; STARTED ABOUT 1 YEAR AGO AND STOPPED 6 MONTHS AGO
     Route: 048
  3. LASIX [Suspect]
     Indication: HYPERTENSION
     Dosage: STOPPED ABOUT 6 MONTHS AGO
  4. COREG [Concomitant]
  5. GLIMEPIRIDE [Concomitant]
  6. SPIRIVA [Concomitant]
  7. ALOE VERA [Concomitant]

REACTIONS (2)
  - ABDOMINAL DISCOMFORT [None]
  - POLLAKIURIA [None]
